FAERS Safety Report 19415415 (Version 1)
Quarter: 2021Q2

REPORT INFORMATION
  Report Type: Spontaneous
  Country: DK (occurrence: DK)
  Receive Date: 20210615
  Receipt Date: 20210615
  Transmission Date: 20210717
  Serious: Yes (Hospitalization)
  Sender: FDA-Public Use
  Company Number: NVSC2021DK128916

PATIENT
  Age: 97 Year
  Sex: Female

DRUGS (1)
  1. VALACICLOVIR ^SANDOZ^ [Suspect]
     Active Substance: VALACYCLOVIR HYDROCHLORIDE
     Indication: HERPES ZOSTER
     Dosage: 3000 MG, QD (2 DOSES ON 23 APR, 3 DOSES ON 24APR)
     Route: 048
     Dates: start: 20210423, end: 20210424

REACTIONS (4)
  - Hallucination [Recovered/Resolved]
  - Fine motor skill dysfunction [Unknown]
  - Rash [Recovering/Resolving]
  - Confusional state [Recovered/Resolved]

NARRATIVE: CASE EVENT DATE: 20210424
